FAERS Safety Report 8896079 (Version 1)
Quarter: 2012Q4

REPORT INFORMATION
  Report Type: 
  Country: US (occurrence: US)
  Receive Date: 20121108
  Receipt Date: 20121108
  Transmission Date: 20130627
  Serious: No
  Sender: FDA-Public Use
  Company Number: US-ASTRAZENECA-2012SE79232

PATIENT
  Age: 65 Year
  Sex: Female
  Weight: 63 kg

DRUGS (3)
  1. PULMICORT FLEXHALER [Suspect]
     Indication: ASTHMA
     Dosage: 1 INHALATION TWO TIMES A DAY
     Route: 055
  2. EVISTA [Concomitant]
     Indication: OSTEOPOROSIS
     Dates: start: 201103
  3. PROVENTIL [Concomitant]
     Indication: ASTHMA
     Dosage: PRN

REACTIONS (4)
  - Glossodynia [Unknown]
  - Glossodynia [Unknown]
  - Osteoporosis [Unknown]
  - Tongue discolouration [Unknown]
